FAERS Safety Report 6606675-0 (Version None)
Quarter: 2010Q1

REPORT INFORMATION
  Report Type: 
  Country: None (occurrence: None)
  Receive Date: 20100226
  Receipt Date: 20100223
  Transmission Date: 20100710
  Serious: Yes (Death, Hospitalization)
  Sender: FDA-Public Use
  Company Number: US-ABBOTT-10P-163-0628115-00

PATIENT
  Sex: Female

DRUGS (15)
  1. HUMIRA [Suspect]
     Indication: RHEUMATOID ARTHRITIS
     Dates: start: 20090808, end: 20090919
  2. HUMIRA [Suspect]
     Dates: start: 20090919, end: 20100219
  3. AMITRIPTYLINE HCL [Concomitant]
     Indication: SLEEP DISORDER THERAPY
     Dates: end: 20100219
  4. NOVOLOG [Concomitant]
     Indication: DIABETES MELLITUS
     Dates: end: 20100219
  5. LANTUS [Concomitant]
     Indication: DIABETES MELLITUS
     Dates: end: 20100219
  6. IRON [Concomitant]
     Indication: ANAEMIA
     Dates: end: 20100219
  7. HYDROCHLOROTHIAZIDE [Concomitant]
     Indication: DRUG USE FOR UNKNOWN INDICATION
     Dates: end: 20100219
  8. METOPROLOL TARTRATE [Concomitant]
     Indication: HYPERTENSION
     Dates: end: 20100219
  9. PERCOCET [Concomitant]
     Indication: PAIN
     Dates: end: 20100219
  10. PROTONIX [Concomitant]
     Indication: DRUG USE FOR UNKNOWN INDICATION
     Dates: end: 20100219
  11. ZOCOR [Concomitant]
     Indication: DRUG USE FOR UNKNOWN INDICATION
     Dates: end: 20100219
  12. TUMS [Concomitant]
     Indication: DRUG USE FOR UNKNOWN INDICATION
     Dates: end: 20100219
  13. PREDNISONE [Concomitant]
     Indication: DRUG USE FOR UNKNOWN INDICATION
     Dates: end: 20100219
  14. DIATX [Concomitant]
     Indication: DRUG USE FOR UNKNOWN INDICATION
     Dates: end: 20100219
  15. VIT E [Concomitant]
     Indication: VITAMIN SUPPLEMENTATION
     Dates: end: 20100219

REACTIONS (7)
  - DRUG INEFFECTIVE [None]
  - EXTREMITY NECROSIS [None]
  - MYOCARDIAL INFARCTION [None]
  - OSTEOMYELITIS [None]
  - PNEUMONIA [None]
  - PYREXIA [None]
  - SEPSIS [None]
